FAERS Safety Report 23993894 (Version 1)
Quarter: 2024Q2

REPORT INFORMATION
  Report Type: Spontaneous
  Country: US (occurrence: US)
  Receive Date: 20240620
  Receipt Date: 20240620
  Transmission Date: 20240716
  Serious: Yes (Other)
  Sender: FDA-Public Use
  Company Number: US-MYLANLABS-2024M1055150

PATIENT
  Age: 76 Year
  Sex: Female

DRUGS (1)
  1. TAMOXIFEN [Suspect]
     Active Substance: TAMOXIFEN
     Indication: Breast cancer stage I
     Dosage: 20 MILLIGRAM, QD, RECEIVED A TOTAL DOSE 36.5G AT TREATMENT COMPLETION
     Route: 048

REACTIONS (1)
  - Retinal tear [Recovering/Resolving]
